FAERS Safety Report 23235826 (Version 1)
Quarter: 2023Q4

REPORT INFORMATION
  Report Type: Spontaneous
  Country: CN (occurrence: None)
  Receive Date: 20231128
  Receipt Date: 20231128
  Transmission Date: 20240109
  Serious: Yes (Other)
  Sender: FDA-Public Use
  Company Number: CN-ROCHE-3461769

PATIENT
  Age: 61 Year
  Sex: Male
  Weight: 90 kg

DRUGS (2)
  1. HERCEPTIN [Suspect]
     Active Substance: TRASTUZUMAB
     Indication: Gastric cancer
     Route: 041
     Dates: start: 20230711, end: 20231109
  2. SINTILIMAB [Concomitant]
     Active Substance: SINTILIMAB
     Indication: Gastric cancer
     Route: 041
     Dates: start: 20230711, end: 20231109

REACTIONS (1)
  - Myocardial injury [Unknown]

NARRATIVE: CASE EVENT DATE: 20231109
